FAERS Safety Report 6245515-9 (Version None)
Quarter: 2009Q2

REPORT INFORMATION
  Report Type: 
  Country: None (occurrence: None)
  Receive Date: 20090625
  Receipt Date: 20090616
  Transmission Date: 20091009
  Serious: Yes (Hospitalization)
  Sender: FDA-Public Use
  Company Number: CH-PFIZER INC-2009227333

PATIENT
  Age: 81 Year

DRUGS (3)
  1. DETRUSITOL SR [Suspect]
     Indication: INCONTINENCE
     Dosage: UNK
     Route: 048
     Dates: start: 20090101, end: 20090204
  2. CALCORT [Concomitant]
     Dosage: UNK
  3. MESTINON [Concomitant]
     Dosage: UNK
     Route: 048

REACTIONS (2)
  - DRUG PRESCRIBING ERROR [None]
  - MYASTHENIC SYNDROME [None]
